FAERS Safety Report 15223220 (Version 3)
Quarter: 2018Q3

REPORT INFORMATION
  Report Type: Report from Study
  Country: US (occurrence: US)
  Receive Date: 20180731
  Receipt Date: 20180910
  Transmission Date: 20181010
  Serious: Yes (Other)
  Sender: FDA-Public Use
  Company Number: US-ALLERGAN-1812073US

PATIENT
  Age: 73 Year
  Sex: Female

DRUGS (4)
  1. BIMATOPROST. [Suspect]
     Active Substance: BIMATOPROST
     Indication: OCULAR HYPERTENSION
     Dosage: 10 ?G, SINGLE
     Route: 031
     Dates: start: 20170608, end: 20170608
  2. BIMATOPROST. [Suspect]
     Active Substance: BIMATOPROST
     Dosage: 10 ?G, SINGLE
     Route: 031
     Dates: start: 20161025, end: 20161025
  3. LUMIGAN [Concomitant]
     Active Substance: BIMATOPROST
     Indication: OCULAR HYPERTENSION
     Dosage: 1 GTT, BID
     Route: 047
     Dates: start: 20180131
  4. PROLENSA [Concomitant]
     Active Substance: BROMFENAC SODIUM
     Indication: MACULAR OEDEMA
     Dosage: 1 GTT, BID
     Route: 047
     Dates: start: 20171026

REACTIONS (1)
  - Corneal endothelial cell loss [Recovered/Resolved]

NARRATIVE: CASE EVENT DATE: 20180301
